FAERS Safety Report 8841749 (Version 1)
Quarter: 2012Q4

REPORT INFORMATION
  Report Type: 
  Country: US (occurrence: US)
  Receive Date: 20121016
  Receipt Date: 20121016
  Transmission Date: 20130627
  Serious: Yes (Hospitalization)
  Sender: FDA-Public Use
  Company Number: US-ELI_LILLY_AND_COMPANY-US201210002590

PATIENT
  Age: 87 Year
  Sex: Male

DRUGS (5)
  1. CIALIS [Suspect]
     Indication: ERECTILE DYSFUNCTION
     Dosage: 5 mg, qd
  2. LASIX [Concomitant]
  3. ANTIHYPERTENSIVES [Concomitant]
  4. SIMVASTATIN [Concomitant]
  5. ASPIRIN [Concomitant]
     Dosage: 1 DF, qd

REACTIONS (2)
  - Coronary artery occlusion [Unknown]
  - Angina pectoris [Unknown]
